FAERS Safety Report 7743134-6 (Version None)
Quarter: 2011Q3

REPORT INFORMATION
  Report Type: 
  Country: None (occurrence: None)
  Receive Date: 20110912
  Receipt Date: 20110902
  Transmission Date: 20111222
  Serious: Yes (Other)
  Sender: FDA-Public Use
  Company Number: FR-ROCHE-800680

PATIENT
  Sex: Female

DRUGS (8)
  1. IMURAN [Suspect]
     Route: 048
     Dates: start: 20110808, end: 20110813
  2. PREDNISONE [Concomitant]
     Dosage: FREQUENCY DAILY
     Route: 048
  3. FUROSEMIDE [Concomitant]
     Dosage: FREQUENCY:1 DOSE FORM DAILY
     Route: 048
  4. PREDNISONE [Concomitant]
     Dosage: FREQUENCY DAILY
     Route: 048
     Dates: start: 20110813
  5. TRIATEC 5 [Concomitant]
     Dosage: FREQUENCY:1 DOSE FORM DAILY
     Route: 048
  6. ROCEPHIN [Suspect]
     Dosage: ROCEPHINE 1 GRAM POWDER AND FREQUENCY: DAILY
     Route: 042
     Dates: start: 20110813, end: 20110816
  7. BISOPROLOL FUMARATE [Concomitant]
     Dosage: FREQUENCY:1 DOSE FORM DAILY
     Route: 048
  8. PREDNISONE [Concomitant]
     Dosage: INTRODUCED AT 40 MG DAILY DOSE AND FREQUENCY:DAILY
     Route: 048
     Dates: start: 20110401

REACTIONS (3)
  - HALLUCINATION, VISUAL [None]
  - DELIRIUM [None]
  - CONFUSIONAL STATE [None]
